FAERS Safety Report 9106478 (Version 1)
Quarter: 2013Q1

REPORT INFORMATION
  Report Type: Spontaneous
  Country: FR (occurrence: FR)
  Receive Date: 20130221
  Receipt Date: 20130221
  Transmission Date: 20140127
  Serious: Yes (Hospitalization)
  Sender: FDA-Public Use
  Company Number: FR-PFIZER INC-2013062219

PATIENT
  Age: 65 Year
  Sex: Female

DRUGS (2)
  1. TAZOCILLINE [Suspect]
     Dosage: UNK
     Route: 042
     Dates: start: 20120407
  2. NEBCINE [Suspect]
     Dosage: UNK
     Route: 042
     Dates: start: 20120407, end: 20120423

REACTIONS (2)
  - Drug reaction with eosinophilia and systemic symptoms [Recovered/Resolved]
  - Skin test negative [Unknown]
